FAERS Safety Report 4506328-9 (Version None)
Quarter: 2004Q4

REPORT INFORMATION
  Report Type: 
  Country: None (occurrence: None)
  Receive Date: 20041025
  Receipt Date: 20040401
  Transmission Date: 20050328
  Serious: Yes (Death, Hospitalization, Other)
  Sender: FDA-Public Use
  Company Number: US-JNJFOC-20031200405

PATIENT
  Age: 73 Year
  Sex: Male
  Weight: 77.1115 kg

DRUGS (23)
  1. REMICADE [Suspect]
     Indication: RHEUMATOID ARTHRITIS
     Dosage: 300 MG, INTRAVENOUS
     Route: 042
     Dates: start: 20031113
  2. REMICADE [Suspect]
     Indication: RHEUMATOID ARTHRITIS
     Dosage: 300 MG, INTRAVENOUS
     Route: 042
     Dates: start: 20031204
  3. COLCHICINE (COLCHICINE) [Concomitant]
  4. FLUOXETINE [Concomitant]
  5. FOSAMAX [Concomitant]
  6. WARFARIN SODIUM [Concomitant]
  7. LISINOPRIL [Concomitant]
  8. DIGOXIN [Concomitant]
  9. K-DUR 10 [Concomitant]
  10. TOPROL-XL [Concomitant]
  11. VIOXX [Concomitant]
  12. VOLTAREN [Concomitant]
  13. HYDOCODEINE (HYDROCODONE) [Concomitant]
  14. ZOLOFT [Concomitant]
  15. LYSINE (LYSINE) [Concomitant]
  16. PREDNISONE [Concomitant]
  17. LASIX [Concomitant]
  18. VICODIN [Concomitant]
  19. WELLBUTRIN [Concomitant]
  20. PROTONIX [Concomitant]
  21. NAFCILLIN (NAFCILLIN) [Concomitant]
  22. DECADRON [Concomitant]
  23. MAGNESIUM SULFATE [Concomitant]

REACTIONS (6)
  - DEPRESSION [None]
  - EXCORIATION [None]
  - FALL [None]
  - PNEUMONIA [None]
  - SEPSIS [None]
  - STAPHYLOCOCCAL ABSCESS [None]
